FAERS Safety Report 11896027 (Version 1)
Quarter: 2016Q1

REPORT INFORMATION
  Report Type: Spontaneous
  Country: US (occurrence: US)
  Receive Date: 20160107
  Receipt Date: 20160107
  Transmission Date: 20160526
  Serious: No
  Sender: FDA-Public Use
  Company Number: US-ASTELLAS-2015US046700

PATIENT
  Age: 49 Year
  Sex: Male

DRUGS (5)
  1. ASTAGRAF XL [Suspect]
     Active Substance: TACROLIMUS
     Indication: HEART TRANSPLANT
     Route: 065
     Dates: start: 20151028, end: 20151110
  2. ASTAGRAF XL [Suspect]
     Active Substance: TACROLIMUS
     Route: 065
     Dates: end: 20151209
  3. ASTAGRAF XL [Suspect]
     Active Substance: TACROLIMUS
     Route: 065
     Dates: start: 20151111
  4. ASTAGRAF XL [Suspect]
     Active Substance: TACROLIMUS
     Route: 065
     Dates: start: 20151210
  5. PROGRAF [Concomitant]
     Active Substance: TACROLIMUS\TACROLIMUS ANHYDROUS
     Indication: HEART TRANSPLANT
     Route: 065

REACTIONS (2)
  - Immunosuppressant drug level decreased [Unknown]
  - Off label use [Unknown]

NARRATIVE: CASE EVENT DATE: 20151028
